FAERS Safety Report 9028774 (Version 1)
Quarter: 2013Q1

REPORT INFORMATION
  Report Type: Spontaneous
  Country: FR (occurrence: FR)
  Receive Date: 20130124
  Receipt Date: 20130124
  Transmission Date: 20140127
  Serious: Yes (Death, Life-Threatening, Other)
  Sender: FDA-Public Use
  Company Number: FR-PFIZER INC-2013025765

PATIENT
  Age: 82 Year
  Sex: Female

DRUGS (7)
  1. AROMASINE [Suspect]
     Dosage: 25 MG, 1X/DAY
     Route: 048
     Dates: start: 20120927, end: 20121105
  2. DEBRIDAT [Suspect]
     Dosage: 1 DF, 3X/DAY
     Route: 048
     Dates: start: 201112, end: 20121105
  3. AFINITOR [Suspect]
     Dosage: 10 MG, 1X/DAY
     Route: 048
     Dates: start: 20120927, end: 20121105
  4. TAREG [Suspect]
     Dosage: 40 MG, 1X/DAY
     Route: 048
     Dates: start: 20120213, end: 20121105
  5. LASILIX [Suspect]
     Dosage: 20 MG, 1X/DAY
     Route: 048
     Dates: start: 201110, end: 20121103
  6. LOVENOX [Suspect]
     Dosage: 8000 IU, ANTI-XA/0.8 ML
     Route: 058
     Dates: start: 201110, end: 20121105
  7. SKENAN [Concomitant]
     Dosage: UNK

REACTIONS (5)
  - Renal failure acute [Fatal]
  - Acidosis [Unknown]
  - Hypokalaemia [Recovered/Resolved]
  - Dehydration [Recovered/Resolved]
  - Fall [Recovered/Resolved]
